FAERS Safety Report 5391744-6 (Version None)
Quarter: 2007Q3

REPORT INFORMATION
  Report Type: 
  Country: None (occurrence: None)
  Receive Date: 20070717
  Receipt Date: 20070709
  Transmission Date: 20080115
  Serious: Yes (Death)
  Sender: FDA-Public Use
  Company Number: 2007AL002745

PATIENT
  Age: 62 Year
  Sex: Male

DRUGS (2)
  1. CITALOPRAM HYDROBROMIDE [Suspect]
     Indication: DEPRESSED MOOD
     Dosage: 20 MG; QD; PO
     Route: 048
     Dates: start: 20060117
  2. CODEINE PHOSPHATE AND ACETAMINOPHEN [Concomitant]

REACTIONS (1)
  - COMPLETED SUICIDE [None]
